FAERS Safety Report 8394936-7 (Version None)
Quarter: 2012Q2

REPORT INFORMATION
  Report Type: 
  Country: None (occurrence: None)
  Receive Date: 20120530
  Receipt Date: 20110928
  Transmission Date: 20120825
  Serious: No
  Sender: FDA-Public Use
  Company Number: US-GLAXOSMITHKLINE-A0946661A

PATIENT
  Age: 10 Year
  Sex: Female
  Weight: 24 kg

DRUGS (6)
  1. REVATIO [Concomitant]
     Indication: PULMONARY ARTERIAL HYPERTENSION
     Dosage: 10MG THREE TIMES PER DAY
     Route: 048
     Dates: start: 20050901
  2. TRACLEER [Concomitant]
     Indication: PULMONARY ARTERIAL HYPERTENSION
     Dosage: 31.25MG TWICE PER DAY
     Route: 048
     Dates: start: 20060501
  3. FUROSEMIDE [Concomitant]
     Indication: PULMONARY ARTERIAL HYPERTENSION
     Dosage: 10MG PER DAY
     Route: 048
     Dates: start: 20080801
  4. DIGOXIN [Concomitant]
     Indication: PULMONARY ARTERIAL HYPERTENSION
     Dosage: 65MCG TWICE PER DAY
     Route: 048
     Dates: start: 20050801
  5. ASPIRIN [Concomitant]
     Indication: PULMONARY ARTERIAL HYPERTENSION
     Dosage: 40.5MG PER DAY
     Route: 048
     Dates: start: 20060801
  6. FLOLAN [Suspect]
     Indication: PULMONARY ARTERIAL HYPERTENSION
     Route: 042
     Dates: start: 20070525

REACTIONS (3)
  - AXILLARY PAIN [None]
  - PRURITUS [None]
  - PAIN IN JAW [None]
